FAERS Safety Report 8037544 (Version 2)
Quarter: 2012Q4

REPORT INFORMATION
  Report Type: 
  Country: US (occurrence: US)
  Receive Date: 20110715
  Receipt Date: 20121130
  Transmission Date: 20130627
  Serious: Yes (Hospitalization)
  Sender: FDA-Public Use
  Company Number: US-JNJFOC-20110703445

PATIENT
  Age: 23 Year
  Sex: Male

DRUGS (5)
  1. PARACETAMOL [Suspect]
     Indication: PRODUCT USED FOR UNKNOWN INDICATION
     Dosage: 5000 mg to 7500 mg
     Route: 048
     Dates: start: 20080805, end: 20080805
  2. PARACETAMOL [Suspect]
     Indication: PRODUCT USED FOR UNKNOWN INDICATION
     Dosage: 5000 mg to 7500 mg
     Route: 048
     Dates: start: 20080804, end: 20080804
  3. PARACETAMOL [Suspect]
     Indication: PRODUCT USED FOR UNKNOWN INDICATION
     Dosage: at 8:00
     Route: 048
     Dates: start: 20080808, end: 20080808
  4. PARACETAMOL [Suspect]
     Indication: PRODUCT USED FOR UNKNOWN INDICATION
     Route: 048
     Dates: start: 20080806, end: 20080806
  5. PARACETAMOL [Suspect]
     Indication: PRODUCT USED FOR UNKNOWN INDICATION
     Dosage: 5000 mg to 7500 mg
     Route: 048
     Dates: start: 20080807, end: 20080807

REACTIONS (2)
  - Overdose [Recovering/Resolving]
  - Liver injury [Recovering/Resolving]
